FAERS Safety Report 9723712 (Version 1)
Quarter: 2013Q4

REPORT INFORMATION
  Report Type: Report from Study
  Country: CA (occurrence: CA)
  Receive Date: 20131202
  Receipt Date: 20131202
  Transmission Date: 20140711
  Serious: Yes (Other)
  Sender: FDA-Public Use
  Company Number: CA-ABBVIE-13P-028-1173935-00

PATIENT
  Sex: Male

DRUGS (5)
  1. HUMIRA [Suspect]
     Indication: RHEUMATOID ARTHRITIS
     Route: 058
     Dates: start: 20131007
  2. PRAZOSIN [Interacting]
     Indication: HYPERTENSION
     Route: 048
  3. PRAZOSIN [Interacting]
     Indication: PROSTATOMEGALY
  4. TERAZOSIN [Interacting]
     Indication: HYPERTENSION
     Route: 048
  5. TERAZOSIN [Interacting]
     Indication: PROSTATOMEGALY

REACTIONS (4)
  - Convulsion [Unknown]
  - Drug interaction [Unknown]
  - Nausea [Unknown]
  - Diarrhoea [Unknown]
